FAERS Safety Report 25277821 (Version 1)
Quarter: 2025Q2

REPORT INFORMATION
  Report Type: Spontaneous
  Country: US (occurrence: None)
  Receive Date: 20250507
  Receipt Date: 20250507
  Transmission Date: 20250716
  Serious: Yes (Hospitalization)
  Sender: FDA-CTU
  Company Number: None

PATIENT
  Age: 70 Year
  Sex: Female

DRUGS (4)
  1. FORTEO [Suspect]
     Active Substance: TERIPARATIDE
     Indication: Senile osteoporosis
     Dates: start: 20250131
  2. LEVOTHYROXIN TAB 25 [Concomitant]
  3. OMEPRAZOLE TAB 20MG [Concomitant]
  4. VITAMIN D3 [Concomitant]
     Active Substance: CHOLECALCIFEROL

REACTIONS (5)
  - Fall [None]
  - Multiple fractures [None]
  - Tendonitis [None]
  - Unevaluable event [None]
  - Loss of personal independence in daily activities [None]

NARRATIVE: CASE EVENT DATE: 20250401
